FAERS Safety Report 20540709 (Version 1)
Quarter: 2022Q1

REPORT INFORMATION
  Report Type: Spontaneous
  Country: CA (occurrence: CA)
  Receive Date: 20220302
  Receipt Date: 20220302
  Transmission Date: 20220424
  Serious: Yes (Other)
  Sender: FDA-Public Use
  Company Number: CA-JNJFOC-20210956883

PATIENT
  Age: 59 Year
  Sex: Female

DRUGS (8)
  1. REMICADE [Suspect]
     Active Substance: INFLIXIMAB
     Indication: Psoriatic arthropathy
     Route: 042
  2. CELEBREX [Concomitant]
     Active Substance: CELECOXIB
  3. ERGOCALCIFEROL [Concomitant]
     Active Substance: ERGOCALCIFEROL
  4. GABAPENTIN [Concomitant]
     Active Substance: GABAPENTIN
  5. GLUCOSAMINE [Concomitant]
     Active Substance: GLUCOSAMINE
  6. INDAPAMIDE [Concomitant]
     Active Substance: INDAPAMIDE
  7. PANTOPRAZOLE SODIUM [Concomitant]
     Active Substance: PANTOPRAZOLE SODIUM
  8. TYLENOL 8 HR ARTHRITIS PAIN [Concomitant]
     Active Substance: ACETAMINOPHEN

REACTIONS (1)
  - Nerve block [Unknown]
